FAERS Safety Report 20726418 (Version 1)
Quarter: 2022Q2

REPORT INFORMATION
  Report Type: Report from Study
  Country: US (occurrence: US)
  Receive Date: 20220419
  Receipt Date: 20220419
  Transmission Date: 20220721
  Serious: Yes (Other)
  Sender: FDA-Public Use
  Company Number: US-SA-2022SA128991

PATIENT
  Age: 16 Year
  Sex: Male

DRUGS (1)
  1. AGALSIDASE BETA [Suspect]
     Active Substance: AGALSIDASE BETA
     Indication: Fabry^s disease
     Dosage: 55 MG, QOW
     Route: 042
     Dates: start: 20211206

REACTIONS (8)
  - Neuropathy peripheral [Unknown]
  - Anxiety [Unknown]
  - Diarrhoea [Unknown]
  - Tachycardia [Unknown]
  - Nausea [Unknown]
  - Aortic valve disease [Unknown]
  - Pain in extremity [Unknown]
  - Depressed mood [Unknown]
